FAERS Safety Report 22030498 (Version 1)
Quarter: 2023Q1

REPORT INFORMATION
  Report Type: Spontaneous
  Country: US (occurrence: US)
  Receive Date: 20230223
  Receipt Date: 20230223
  Transmission Date: 20230417
  Serious: No
  Sender: FDA-Public Use
  Company Number: US-LANTHEUS-LMI-2022-01265

PATIENT
  Age: 77 Year
  Sex: Male
  Weight: 105 kg

DRUGS (1)
  1. DEFINITY RT [Suspect]
     Active Substance: PERFLUTREN
     Indication: Echocardiogram
     Dosage: 4 MILLILITRE (DILUTION DETAILS NOT REPORTED)
     Route: 042
     Dates: start: 20221018, end: 20221018

REACTIONS (4)
  - Eye pain [Recovered/Resolved]
  - Visual impairment [Recovered/Resolved]
  - Headache [Recovered/Resolved]
  - Arthralgia [Recovered/Resolved]

NARRATIVE: CASE EVENT DATE: 20221018
